FAERS Safety Report 8953647 (Version 1)
Quarter: 2012Q4

REPORT INFORMATION
  Report Type: Report from Study
  Country: CA (occurrence: CA)
  Receive Date: 20121206
  Receipt Date: 20121206
  Transmission Date: 20130627
  Serious: Yes (Hospitalization, Other)
  Sender: FDA-Public Use
  Company Number: CA-JNJFOC-20121114417

PATIENT
  Age: 72 None
  Sex: Male
  Weight: 105 kg

DRUGS (11)
  1. REMICADE [Suspect]
     Indication: RHEUMATOID ARTHRITIS
     Dosage: 300 (units unspecified)
     Route: 042
     Dates: start: 20001219
  2. COUMADIN [Concomitant]
     Dosage: as per international normalized ratio
     Route: 048
  3. METHOTREXATE [Concomitant]
     Route: 048
  4. FOLIC ACID [Concomitant]
     Dosage: 5/7 days
     Route: 048
  5. FUROSEMIDE [Concomitant]
     Route: 048
  6. LIPITOR [Concomitant]
     Route: 048
  7. PLAQUENIL [Concomitant]
     Route: 048
  8. RABEPRAZOLE [Concomitant]
     Route: 048
  9. MICARDIS [Concomitant]
     Route: 048
  10. ALLOPURINOL [Concomitant]
     Route: 048
  11. SYMBICORT [Concomitant]
     Route: 065

REACTIONS (2)
  - Myocardial infarction [Recovered/Resolved]
  - Chronic obstructive pulmonary disease [Unknown]
